FAERS Safety Report 10758053 (Version 1)
Quarter: 2015Q1

REPORT INFORMATION
  Report Type: Spontaneous
  Country: US (occurrence: None)
  Receive Date: 20150202
  Receipt Date: 20150202
  Transmission Date: 20150721
  Serious: Yes (Other)
  Sender: FDA-Public Use
  Company Number: None

PATIENT
  Age: 8 Year
  Sex: Male
  Weight: 42.18 kg

DRUGS (1)
  1. GUANFACINE ER [Suspect]
     Active Substance: GUANFACINE
     Indication: ATTENTION DEFICIT/HYPERACTIVITY DISORDER
     Route: 048
     Dates: start: 201406, end: 201501

REACTIONS (4)
  - Vomiting [None]
  - Product substitution issue [None]
  - Attention deficit/hyperactivity disorder [None]
  - Disease recurrence [None]

NARRATIVE: CASE EVENT DATE: 201406
